FAERS Safety Report 6651086-5 (Version None)
Quarter: 2010Q1

REPORT INFORMATION
  Report Type: 
  Country: None (occurrence: None)
  Receive Date: 20100325
  Receipt Date: 20100315
  Transmission Date: 20100710
  Serious: Yes (Hospitalization)
  Sender: FDA-Public Use
  Company Number: IT-PFIZER INC-2010033170

PATIENT
  Age: 21 Year
  Sex: Male

DRUGS (1)
  1. OTREON [Suspect]
     Indication: BRONCHITIS
     Dosage: 200 MG, UNK
     Route: 048
     Dates: start: 20070511, end: 20070511

REACTIONS (2)
  - ELECTROCARDIOGRAM ABNORMAL [None]
  - HYPOTENSION [None]
